FAERS Safety Report 18464821 (Version 1)
Quarter: 2020Q4

REPORT INFORMATION
  Report Type: Spontaneous
  Country: NL (occurrence: NL)
  Receive Date: 20201104
  Receipt Date: 20201104
  Transmission Date: 20210114
  Serious: Yes (Life-Threatening, Hospitalization)
  Sender: FDA-Public Use
  Company Number: NL-MEITHEAL PHARMACEUTICALS-2020MHL00072

PATIENT
  Age: 45 Year
  Sex: Male

DRUGS (3)
  1. ETOPOSIDE. [Concomitant]
     Active Substance: ETOPOSIDE
     Route: 065
  2. BLEOMYCIN [Suspect]
     Active Substance: BLEOMYCIN SULFATE
     Indication: TESTICULAR GERM CELL TUMOUR MIXED
     Dosage: TOTAL OF 150 UNITS
     Route: 065
  3. CISPLATIN. [Concomitant]
     Active Substance: CISPLATIN
     Route: 065

REACTIONS (5)
  - Respiratory failure [Recovering/Resolving]
  - Pneumothorax [Unknown]
  - Pulmonary toxicity [Recovering/Resolving]
  - Organising pneumonia [Unknown]
  - Pneumomediastinum [Unknown]
